FAERS Safety Report 21054737 (Version 13)
Quarter: 2022Q4

REPORT INFORMATION
  Report Type: Report from Study
  Country: FI (occurrence: FI)
  Receive Date: 20220707
  Receipt Date: 20221004
  Transmission Date: 20230113
  Serious: Yes (Death, Life-Threatening, Hospitalization, Disabling, Other)
  Sender: FDA-Public Use
  Company Number: FI-BRISTOL-MYERS SQUIBB COMPANY-2022-069717

PATIENT
  Age: 64 Year
  Sex: Male
  Weight: 86 kg

DRUGS (14)
  1. ENOXAPARIN [Concomitant]
     Active Substance: ENOXAPARIN
     Indication: Prophylaxis
     Route: 058
     Dates: start: 20220704, end: 20220704
  2. ENOXAPARIN [Concomitant]
     Active Substance: ENOXAPARIN
  3. CARVEDILOL [Concomitant]
     Active Substance: CARVEDILOL
     Indication: Product used for unknown indication
     Route: 048
     Dates: start: 20180823, end: 20220704
  4. CARVEDILOL [Concomitant]
     Active Substance: CARVEDILOL
  5. ACETAMINOPHEN [Concomitant]
     Active Substance: ACETAMINOPHEN
     Indication: Product used for unknown indication
     Dosage: FREQUENCY -  AS NEEDED, ONGOING
     Route: 048
     Dates: start: 20220609
  6. IBUPROFEN [Concomitant]
     Active Substance: IBUPROFEN
     Indication: Product used for unknown indication
     Dosage: FREQUENCY -  AS NEEDED
     Route: 048
     Dates: start: 20220314, end: 20220704
  7. HYDROCHLOROTHIAZIDE\TELMISARTAN [Concomitant]
     Active Substance: HYDROCHLOROTHIAZIDE\TELMISARTAN
     Indication: Product used for unknown indication
     Dosage: MICARDIS PLUS (TELMISARTAN 80 MG / HYDROCHLOROTHIAZIDE 25 MG)?1 DF= 1 UNIT NOS
     Route: 048
     Dates: start: 20220607, end: 20220704
  8. DUTASTERIDE [Concomitant]
     Active Substance: DUTASTERIDE
     Indication: Product used for unknown indication
     Route: 048
     Dates: start: 20201218, end: 20220704
  9. INSULIN ASPART [Concomitant]
     Active Substance: INSULIN ASPART
     Indication: Hyperglycaemia
     Dosage: 1 DF= 7 UNITS NOS
     Route: 058
     Dates: start: 20220705
  10. PANTOPRAZOLE [Concomitant]
     Active Substance: PANTOPRAZOLE
     Indication: Product used for unknown indication
     Route: 048
     Dates: start: 20220705
  11. OXAZEPAM [Concomitant]
     Active Substance: OXAZEPAM
     Indication: Product used for unknown indication
     Dosage: FREQUENCY -  AS NEEDED
     Route: 048
     Dates: start: 20220715
  12. PFIZER-BIONTECH COVID-19 VACCINE [Concomitant]
     Active Substance: TOZINAMERAN
     Indication: Product used for unknown indication
     Route: 065
     Dates: start: 20210514
  13. PFIZER-BIONTECH COVID-19 VACCINE [Concomitant]
     Active Substance: TOZINAMERAN
     Route: 065
     Dates: start: 20220803
  14. PFIZER-BIONTECH COVID-19 VACCINE [Concomitant]
     Active Substance: TOZINAMERAN
     Route: 065
     Dates: start: 20220112

REACTIONS (5)
  - Autoimmune myositis [Fatal]
  - Autoimmune myocarditis [Fatal]
  - Hepatitis [Recovered/Resolved with Sequelae]
  - Anal fistula [Not Recovered/Not Resolved]
  - Atrial fibrillation [Not Recovered/Not Resolved]

NARRATIVE: CASE EVENT DATE: 20220704
